FAERS Safety Report 4332605-0 (Version None)
Quarter: 2004Q1

REPORT INFORMATION
  Report Type: 
  Country: None (occurrence: None)
  Receive Date: 20040330
  Receipt Date: 20021007
  Transmission Date: 20041129
  Serious: Yes (Hospitalization)
  Sender: FDA-Public Use
  Company Number: 2002IC000285

PATIENT
  Age: 66 Year
  Sex: Male
  Weight: 97 kg

DRUGS (2)
  1. FLUOROURACIL [Suspect]
     Dosage: 900 MG;UNKNOWN; INTRAVENOUS
     Route: 042
     Dates: start: 19991018, end: 19991022
  2. LEUCOVORIN CALCIUM [Suspect]
     Dosage: 40 MG/UNKNOWN/INTRAVENOUS
     Route: 042
     Dates: start: 19991018, end: 19991022

REACTIONS (1)
  - DIARRHOEA [None]
